FAERS Safety Report 14654068 (Version 3)
Quarter: 2018Q3

REPORT INFORMATION
  Report Type: Spontaneous
  Country: ES (occurrence: ES)
  Receive Date: 20180319
  Receipt Date: 20180813
  Transmission Date: 20181010
  Serious: Yes (Hospitalization, Other)
  Sender: FDA-Public Use
  Company Number: PHHY2018ES047250

PATIENT
  Age: 47 Year
  Sex: Male

DRUGS (4)
  1. PARACETAMOL [Interacting]
     Active Substance: ACETAMINOPHEN
     Indication: PYREXIA
     Route: 048
  2. TOBRAMICINA [Interacting]
     Active Substance: TOBRAMYCIN
     Indication: URINARY TRACT INFECTION
     Route: 065
  3. CEFTRIAXONA [Interacting]
     Active Substance: CEFTRIAXONE
     Indication: URINARY TRACT INFECTION
     Route: 065
  4. IBUPROFENO [Suspect]
     Active Substance: IBUPROFEN
     Indication: PYREXIA
     Dosage: 600 MG, Q8H
     Route: 048
     Dates: start: 20160121, end: 20160129

REACTIONS (1)
  - Acute kidney injury [Recovered/Resolved]

NARRATIVE: CASE EVENT DATE: 20160129
